FAERS Safety Report 8253010-0 (Version None)
Quarter: 2012Q2

REPORT INFORMATION
  Report Type: 
  Country: None (occurrence: None)
  Receive Date: 20120402
  Receipt Date: 20120328
  Transmission Date: 20120825
  Serious: Yes (Hospitalization, Disabling)
  Sender: FDA-Public Use
  Company Number: US-MERCK-1105USA02551

PATIENT
  Age: 66 Year
  Sex: Female
  Weight: 68 kg

DRUGS (11)
  1. FOSAMAX [Suspect]
     Indication: OSTEOPENIA
     Route: 048
     Dates: start: 20000428, end: 20010118
  2. PRILOSEC [Concomitant]
     Indication: GASTROOESOPHAGEAL REFLUX DISEASE
     Route: 065
     Dates: start: 19900101
  3. PREVACID [Concomitant]
     Indication: GASTROOESOPHAGEAL REFLUX DISEASE
     Route: 065
     Dates: start: 20060901, end: 20090101
  4. FOSAMAX [Suspect]
     Indication: OSTEOPOROSIS
     Route: 048
     Dates: start: 20080217, end: 20080831
  5. ESTRADIOL [Concomitant]
     Route: 065
     Dates: start: 20000801, end: 20040401
  6. FOSAMAX PLUS D [Suspect]
     Indication: OSTEOPENIA
     Route: 048
     Dates: start: 20051114, end: 20070903
  7. ALENDRONATE SODIUM [Suspect]
     Route: 048
     Dates: start: 20091116
  8. FOSAMAX [Suspect]
     Route: 048
     Dates: start: 20020112, end: 20050913
  9. FOSAMAX PLUS D [Suspect]
     Indication: OSTEOPOROSIS
     Route: 048
     Dates: start: 20051114, end: 20070903
  10. ALENDRONATE SODIUM [Suspect]
     Indication: OSTEOPOROSIS
     Route: 048
     Dates: start: 20080927, end: 20090827
  11. FOSAMAX [Suspect]
     Route: 048
     Dates: start: 20080217, end: 20080831

REACTIONS (50)
  - PERIARTHRITIS [None]
  - DEPRESSION [None]
  - FIBROMYALGIA [None]
  - URINARY TRACT INFECTION [None]
  - SPINAL OSTEOARTHRITIS [None]
  - HYPERLIPIDAEMIA [None]
  - DIVERTICULUM [None]
  - ANXIETY [None]
  - ATELECTASIS [None]
  - HAEMORRHOIDS [None]
  - DYSPHAGIA [None]
  - PLANTAR FASCIITIS [None]
  - TENOSYNOVITIS [None]
  - NOCTURIA [None]
  - CATARACT [None]
  - CONSTIPATION [None]
  - ACQUIRED OESOPHAGEAL WEB [None]
  - ASTHENIA [None]
  - ROTATOR CUFF SYNDROME [None]
  - ROAD TRAFFIC ACCIDENT [None]
  - FEMUR FRACTURE [None]
  - DRUG INEFFECTIVE [None]
  - EXERCISE LACK OF [None]
  - BURSITIS [None]
  - SPINAL DISORDER [None]
  - MUSCULOSKELETAL CHEST PAIN [None]
  - PELVIC PAIN [None]
  - CYSTOCELE [None]
  - PAIN [None]
  - ADVERSE EVENT [None]
  - BUNION [None]
  - HIATUS HERNIA [None]
  - FOOT DEFORMITY [None]
  - MUSCULOSKELETAL PAIN [None]
  - PELVIC ADHESIONS [None]
  - TREATMENT NONCOMPLIANCE [None]
  - OSTEOARTHRITIS [None]
  - CONTUSION [None]
  - NAUSEA [None]
  - OSTEONECROSIS [None]
  - PYREXIA [None]
  - BACK PAIN [None]
  - FALL [None]
  - HAIR TEXTURE ABNORMAL [None]
  - LIMB INJURY [None]
  - STRESS [None]
  - INTERVERTEBRAL DISC PROTRUSION [None]
  - TRIGGER FINGER [None]
  - INTERVERTEBRAL DISC DEGENERATION [None]
  - INSOMNIA [None]
